FAERS Safety Report 9735632 (Version 1)
Quarter: 2013Q4

REPORT INFORMATION
  Report Type: Spontaneous
  Country: US (occurrence: None)
  Receive Date: 20131204
  Receipt Date: 20131204
  Transmission Date: 20140711
  Serious: Yes (Death)
  Sender: FDA-Public Use
  Company Number: US-ALKEM-000259

PATIENT
  Age: 50 Year
  Sex: Female

DRUGS (4)
  1. METFORMIN (METFORMIN) [Suspect]
     Route: 048
  2. AMLODIPINE (AMLODIPINE) [Suspect]
     Route: 048
  3. RISPERIDONE (RISPERIDONE) [Suspect]
     Route: 048
  4. TRAMADOL (TRAMADOL) [Suspect]
     Route: 048

REACTIONS (3)
  - Completed suicide [None]
  - Overdose [None]
  - Exposure via ingestion [None]
